FAERS Safety Report 20959345 (Version 1)
Quarter: 2022Q2

REPORT INFORMATION
  Report Type: Spontaneous
  Country: US (occurrence: US)
  Receive Date: 20220614
  Receipt Date: 20220614
  Transmission Date: 20220721
  Serious: Yes (Other)
  Sender: FDA-Public Use
  Company Number: US-Blueprint Medicines Corporation-SP-US-2022-001812

PATIENT
  Age: 50 Year
  Sex: Female

DRUGS (1)
  1. AYVAKIT [Suspect]
     Active Substance: AVAPRITINIB
     Indication: Systemic mastocytosis
     Route: 048
     Dates: start: 20200131

REACTIONS (7)
  - Paracentesis [Not Recovered/Not Resolved]
  - Drainage [Not Recovered/Not Resolved]
  - Insomnia [Not Recovered/Not Resolved]
  - Food intolerance [Not Recovered/Not Resolved]
  - Abdominal distension [Recovering/Resolving]
  - Flatulence [Recovering/Resolving]
  - Mycotic allergy [Not Recovered/Not Resolved]

NARRATIVE: CASE EVENT DATE: 20200606
